FAERS Safety Report 4699691-X (Version None)
Quarter: 2005Q2

REPORT INFORMATION
  Report Type: 
  Country: None (occurrence: None)
  Receive Date: 20050624
  Receipt Date: 20010413
  Transmission Date: 20051028
  Serious: Yes (Hospitalization, Other)
  Sender: FDA-Public Use
  Company Number: JP-ABBOTT-01P-087-0105965-00

PATIENT
  Age: 64 Year
  Sex: Male

DRUGS (9)
  1. NORVIR [Suspect]
     Indication: HIV INFECTION
     Route: 048
     Dates: start: 20000120, end: 20041028
  2. NORVIR [Suspect]
     Route: 048
     Dates: start: 19991220, end: 20000119
  3. NORVIR [Suspect]
     Route: 048
     Dates: start: 20041029
  4. INDINAVIR [Suspect]
     Indication: HIV INFECTION
     Route: 048
     Dates: start: 19991101, end: 20000119
  5. INDINAVIR [Suspect]
     Route: 048
     Dates: start: 20000120, end: 20041028
  6. LAMIVUDINE [Concomitant]
     Indication: HIV INFECTION
     Route: 048
     Dates: start: 19991101
  7. STAVUDINE [Concomitant]
     Indication: HIV INFECTION
     Route: 048
     Dates: start: 19991101
  8. RURIOCTOCOG ALFA [Concomitant]
     Indication: FACTOR VIII DEFICIENCY
     Route: 042
     Dates: start: 20000417
  9. ATAZANAVIR [Concomitant]
     Indication: HIV INFECTION
     Dosage: NOT REPORTED
     Route: 048
     Dates: start: 20041029

REACTIONS (3)
  - HAEMATOMA [None]
  - HEPATIC NEOPLASM MALIGNANT [None]
  - OTITIS MEDIA [None]
